FAERS Safety Report 4985729-9 (Version None)
Quarter: 2006Q2

REPORT INFORMATION
  Report Type: 
  Country: None (occurrence: None)
  Receive Date: 20060428
  Receipt Date: 20060117
  Transmission Date: 20061013
  Serious: No
  Sender: FDA-Public Use
  Company Number: US-GLAXOSMITHKLINE-A0589642A

PATIENT
  Age: 18 Year
  Sex: Female

DRUGS (3)
  1. ZOFRAN [Suspect]
     Indication: NAUSEA
     Dosage: 8MG THREE TIMES PER DAY
     Route: 048
     Dates: start: 20060113
  2. ORTHO TRI-CYCLEN [Concomitant]
  3. PREDNISONE [Concomitant]

REACTIONS (1)
  - AMNESIA [None]
